FAERS Safety Report 25236986 (Version 3)
Quarter: 2025Q2

REPORT INFORMATION
  Report Type: Report from Study
  Country: US (occurrence: US)
  Receive Date: 20250424
  Receipt Date: 20250527
  Transmission Date: 20250716
  Serious: Yes (Death, Other)
  Sender: ABBVIE
  Company Number: US-ABBVIE-6248165

PATIENT
  Sex: Female

DRUGS (1)
  1. CREON [Suspect]
     Active Substance: PANCRELIPASE AMYLASE\PANCRELIPASE LIPASE\PANCRELIPASE PROTEASE
     Indication: Pancreatic carcinoma
     Route: 048
     Dates: start: 202311, end: 202502

REACTIONS (4)
  - Thrombosis [Fatal]
  - Pancreatic carcinoma metastatic [Fatal]
  - Portal vein occlusion [Fatal]
  - Hypercoagulation [Fatal]

NARRATIVE: CASE EVENT DATE: 20250201
